FAERS Safety Report 9434784 (Version 1)
Quarter: 2013Q3

REPORT INFORMATION
  Report Type: Spontaneous
  Country: CN (occurrence: CN)
  Receive Date: 20130801
  Receipt Date: 20130801
  Transmission Date: 20140515
  Serious: Yes (Other)
  Sender: FDA-Public Use
  Company Number: CN-PFIZER INC-2013220144

PATIENT
  Age: 60 Year
  Sex: Female
  Weight: 40 kg

DRUGS (2)
  1. PHARMORUBICIN [Suspect]
     Indication: BREAST CANCER METASTATIC
     Dosage: 120 MG, ONCE DAILY
     Route: 041
     Dates: start: 20120110, end: 20120110
  2. TAXOL [Concomitant]
     Indication: BREAST CANCER METASTATIC
     Dosage: 240 MG, ONCE DAILY
     Route: 041
     Dates: start: 20120110

REACTIONS (3)
  - Bone marrow failure [Recovering/Resolving]
  - Temperature intolerance [Recovering/Resolving]
  - Pyrexia [Recovering/Resolving]
